FAERS Safety Report 14477091 (Version 1)
Quarter: 2018Q1

REPORT INFORMATION
  Report Type: Report from Study
  Country: US (occurrence: US)
  Receive Date: 20180201
  Receipt Date: 20180201
  Transmission Date: 20180509
  Serious: No
  Sender: FDA-Public Use
  Company Number: US-EXELIXIS-CABO-17009383

PATIENT
  Age: 62 Year
  Sex: Female

DRUGS (12)
  1. ALPRAZOLAM. [Concomitant]
     Active Substance: ALPRAZOLAM
  2. TYLENOL [Concomitant]
     Active Substance: ACETAMINOPHEN
  3. PROAIR HFA [Concomitant]
     Active Substance: ALBUTEROL SULFATE
  4. MULTI VIT [Concomitant]
  5. FLUTICASONE. [Concomitant]
     Active Substance: FLUTICASONE
  6. METOPROLOL. [Concomitant]
     Active Substance: METOPROLOL
  7. PREMARIN [Concomitant]
     Active Substance: ESTROGENS, CONJUGATED
  8. QVAR [Concomitant]
     Active Substance: BECLOMETHASONE DIPROPIONATE
  9. CABOMETYX [Suspect]
     Active Substance: CABOZANTINIB S-MALATE
     Indication: NEOPLASM MALIGNANT
     Dosage: 40 MG, QD
     Route: 048
     Dates: start: 20170512, end: 20170701
  10. LEVOTHYROXINE. [Concomitant]
     Active Substance: LEVOTHYROXINE
  11. ONDANSETRON [Concomitant]
     Active Substance: ONDANSETRON
  12. CABOMETYX [Suspect]
     Active Substance: CABOZANTINIB S-MALATE
     Indication: CHRONIC OBSTRUCTIVE PULMONARY DISEASE

REACTIONS (10)
  - Heart valve incompetence [Unknown]
  - Off label use [Unknown]
  - Headache [Unknown]
  - Pain in extremity [Unknown]
  - Fatigue [Unknown]
  - Oral discomfort [Not Recovered/Not Resolved]
  - Dry mouth [Unknown]
  - Weight decreased [Unknown]
  - Orthostatic hypotension [Unknown]
  - Back pain [Unknown]

NARRATIVE: CASE EVENT DATE: 20170512
